FAERS Safety Report 8608502-9 (Version None)
Quarter: 2012Q3

REPORT INFORMATION
  Report Type: 
  Country: None (occurrence: None)
  Receive Date: 20120809
  Receipt Date: 20120809
  Transmission Date: 20120928
  Serious: Yes (Hospitalization)
  Sender: FDA-Public Use
  Company Number: None

PATIENT
  Age: 76 Year
  Sex: Female
  Weight: 55.3388 kg

DRUGS (1)
  1. PHENAZOPYRIDINE HCL TAB [Suspect]
     Dosage: 200MG

REACTIONS (2)
  - DYSPNOEA [None]
  - DIZZINESS [None]
